FAERS Safety Report 11064250 (Version 3)
Quarter: 2015Q3

REPORT INFORMATION
  Report Type: Report from Study
  Country: US (occurrence: US)
  Receive Date: 20150424
  Receipt Date: 20150720
  Transmission Date: 20151125
  Serious: Yes (Other)
  Sender: FDA-Public Use
  Company Number: US-SANOFI-AVENTIS-2013SA064519

PATIENT
  Age: 64 Year
  Sex: Female
  Weight: 43 kg

DRUGS (2)
  1. METHENAMINE [Concomitant]
     Active Substance: METHENAMINE
     Indication: BLADDER DISORDER
  2. AUBAGIO [Suspect]
     Active Substance: TERIFLUNOMIDE
     Indication: MULTIPLE SCLEROSIS
     Dosage: PRODUCT STARTED THREE MONTHS AGO.
     Route: 048
     Dates: start: 20130406, end: 20150531

REACTIONS (15)
  - Pollakiuria [Recovered/Resolved]
  - Activities of daily living impaired [Not Recovered/Not Resolved]
  - Temperature intolerance [Not Recovered/Not Resolved]
  - Burning sensation [Recovered/Resolved]
  - Incontinence [Recovered/Resolved]
  - Nausea [Not Recovered/Not Resolved]
  - Dysphonia [Not Recovered/Not Resolved]
  - Rhinorrhoea [Not Recovered/Not Resolved]
  - Condition aggravated [Not Recovered/Not Resolved]
  - Urinary tract infection [Recovering/Resolving]
  - Urine abnormality [Recovered/Resolved]
  - Progressive multiple sclerosis [Not Recovered/Not Resolved]
  - Drug ineffective [Unknown]
  - Gait disturbance [Not Recovered/Not Resolved]
  - Fatigue [Not Recovered/Not Resolved]

NARRATIVE: CASE EVENT DATE: 20130618
